FAERS Safety Report 14398826 (Version 2)
Quarter: 2018Q1

REPORT INFORMATION
  Report Type: Spontaneous
  Country: US (occurrence: US)
  Receive Date: 20180117
  Receipt Date: 20180213
  Transmission Date: 20180509
  Serious: No
  Sender: FDA-Public Use
  Company Number: US-TEVA-2017-US-832607

PATIENT
  Age: 75 Year
  Sex: Female

DRUGS (1)
  1. IPRATROPIUM BROMIDE AND ALBUTEROL SULFATE [Suspect]
     Active Substance: ALBUTEROL SULFATE\IPRATROPIUM BROMIDE
     Dosage: IPRATROPIUM BROMIDE 0.5 MG AND ALBUTEROL SULFATE 3 MG
     Route: 065

REACTIONS (2)
  - Epistaxis [Recovering/Resolving]
  - Product taste abnormal [Recovering/Resolving]

NARRATIVE: CASE EVENT DATE: 20171204
